FAERS Safety Report 8807942 (Version 1)
Quarter: 2012Q4

REPORT INFORMATION
  Report Type: 
  Country: US (occurrence: US)
  Receive Date: 20120925
  Receipt Date: 20120925
  Transmission Date: 20130627
  Serious: Yes (Death)
  Sender: FDA-Public Use
  Company Number: US-ROCHE-1127515

PATIENT
  Sex: Female

DRUGS (5)
  1. AVASTIN [Suspect]
     Indication: BREAST CANCER FEMALE
     Dosage: dose given only on 26-oct
     Route: 065
  2. GEMCITABINE [Concomitant]
  3. CARBOPLATIN [Concomitant]
  4. DOCETAXEL [Concomitant]
  5. DOXORUBICIN [Concomitant]

REACTIONS (4)
  - Death [Fatal]
  - Dizziness [Unknown]
  - Fatigue [Unknown]
  - Infected cyst [Recovered/Resolved]
